FAERS Safety Report 25329721 (Version 1)
Quarter: 2025Q2

REPORT INFORMATION
  Report Type: Spontaneous
  Country: DE (occurrence: DE)
  Receive Date: 20250519
  Receipt Date: 20250519
  Transmission Date: 20250717
  Serious: Yes (Life-Threatening, Hospitalization, Other)
  Sender: ACCORD
  Company Number: None

PATIENT
  Sex: Male
  Weight: 74.7 kg

DRUGS (7)
  1. ATORVASTATIN [Suspect]
     Active Substance: ATORVASTATIN
     Indication: Hypercholesterolaemia
     Dosage: 80 MG, QD
     Dates: start: 202308, end: 20241216
  2. EZETIMIBE [Suspect]
     Active Substance: EZETIMIBE
     Indication: Hypercholesterolaemia
     Dosage: 10 MG, QD
     Dates: start: 202308, end: 20250104
  3. INCLISIRAN [Suspect]
     Active Substance: INCLISIRAN
     Indication: Hypercholesterolaemia
     Dates: start: 20240913
  4. PANCRELIPASE [Concomitant]
     Active Substance: PANCRELIPASE
     Indication: Pancreatic failure
     Dosage: 25000 IU, TID
     Dates: start: 20250215
  5. CAPECITABINE [Concomitant]
     Active Substance: CAPECITABINE
     Indication: Pancreatic carcinoma
     Dosage: 1000 MG, BID
     Dates: start: 20250227
  6. LINEZOLID [Concomitant]
     Active Substance: LINEZOLID
     Indication: Drainage
     Dates: start: 20250120, end: 20250127
  7. INCLISIRAN [Suspect]
     Active Substance: INCLISIRAN
     Indication: Hypercholesterolaemia
     Dates: start: 20241212

REACTIONS (5)
  - Cholestasis [Recovering/Resolving]
  - Pancreatic carcinoma [Recovering/Resolving]
  - Dehiscence [Recovered/Resolved]
  - Abscess [Recovered/Resolved]
  - Hepatic enzyme increased [Not Recovered/Not Resolved]

NARRATIVE: CASE EVENT DATE: 20241212
